FAERS Safety Report 13578363 (Version 2)
Quarter: 2017Q2

REPORT INFORMATION
  Report Type: Report from Study
  Country: US (occurrence: US)
  Receive Date: 20170524
  Receipt Date: 20170607
  Transmission Date: 20170830
  Serious: No
  Sender: FDA-Public Use
  Company Number: US-ALEXION PHARMACEUTICALS INC.-A201705412

PATIENT
  Sex: Male

DRUGS (1)
  1. SOLIRIS [Suspect]
     Active Substance: ECULIZUMAB
     Indication: PAROXYSMAL NOCTURNAL HAEMOGLOBINURIA
     Dosage: 1200 MG, Q2W
     Route: 042
     Dates: start: 20100827

REACTIONS (12)
  - Viral upper respiratory tract infection [Not Recovered/Not Resolved]
  - Oropharyngeal pain [Unknown]
  - Malaise [Unknown]
  - Incorrect dose administered [Recovered/Resolved]
  - Productive cough [Not Recovered/Not Resolved]
  - Blood urine present [Recovered/Resolved]
  - Chest pain [Recovered/Resolved]
  - Influenza [Not Recovered/Not Resolved]
  - Dysphagia [Recovered/Resolved]
  - Flank pain [Recovered/Resolved]
  - Blood urine present [Recovered/Resolved]
  - Dysphagia [Recovered/Resolved]

NARRATIVE: CASE EVENT DATE: 20100827
